FAERS Safety Report 6779182-2 (Version None)
Quarter: 2010Q2

REPORT INFORMATION
  Report Type: 
  Country: None (occurrence: None)
  Receive Date: 20100618
  Receipt Date: 20100615
  Transmission Date: 20101027
  Serious: Yes (Other)
  Sender: FDA-Public Use
  Company Number: US-BRISTOL-MYERS SQUIBB COMPANY-15149883

PATIENT

DRUGS (1)
  1. ERBITUX [Suspect]

REACTIONS (1)
  - EXTRAVASATION [None]
